FAERS Safety Report 12591846 (Version 1)
Quarter: 2016Q3

REPORT INFORMATION
  Report Type: Spontaneous
  Country: US (occurrence: None)
  Receive Date: 20160725
  Receipt Date: 20160725
  Transmission Date: 20161109
  Serious: No
  Sender: FDA-Public Use
  Company Number: None

PATIENT
  Age: 56 Year
  Sex: Female

DRUGS (4)
  1. IBRANCE [Suspect]
     Active Substance: PALBOCICLIB
     Indication: BREAST CANCER
     Dosage: IBRANCE 75MG CAP?DAILY FOR 14 DAYS?PO
     Route: 048
     Dates: start: 20150728, end: 201607
  2. LETROZOLE. [Concomitant]
     Active Substance: LETROZOLE
  3. EFFEXOR [Concomitant]
     Active Substance: VENLAFAXINE HYDROCHLORIDE
  4. OXYBUTYNIN [Concomitant]
     Active Substance: OXYBUTYNIN

REACTIONS (4)
  - Hypoaesthesia [None]
  - Fatigue [None]
  - Nasal ulcer [None]
  - Arthralgia [None]

NARRATIVE: CASE EVENT DATE: 201607
